FAERS Safety Report 4707517-0 (Version None)
Quarter: 2005Q3

REPORT INFORMATION
  Report Type: 
  Country: None (occurrence: None)
  Receive Date: 20050701
  Receipt Date: 20050624
  Transmission Date: 20060218
  Serious: Yes (Other)
  Sender: FDA-Public Use
  Company Number: 2005082136

PATIENT
  Age: 75 Year
  Sex: Female

DRUGS (6)
  1. LIPITOR [Suspect]
     Indication: HYPERLIPIDAEMIA
     Dosage: 10 MG (10 MG, 1 IN 1 D), ORAL
     Route: 048
     Dates: start: 20050409
  2. LORMETAZEPAM (LORMETAZEPAM) [Concomitant]
  3. EPINASTINE HYDROCHLORIDE (EPINASTINE  HYDROCHLORIDE ) [Concomitant]
  4. CINAL (ASCORBIC ACID, CALCIUM PANTOTHENATE) [Concomitant]
  5. URSODIOL [Concomitant]
  6. EPADEL (ETHYL ICOSAPENTATE) [Concomitant]

REACTIONS (2)
  - CARDIAC DISORDER [None]
  - SINUS BRADYCARDIA [None]
